FAERS Safety Report 13517744 (Version 1)
Quarter: 2017Q2

REPORT INFORMATION
  Report Type: Spontaneous
  Country: US (occurrence: US)
  Receive Date: 20170505
  Receipt Date: 20170505
  Transmission Date: 20170830
  Serious: Yes (Other)
  Sender: FDA-Public Use
  Company Number: US-AMGEN-USASP2017067925

PATIENT
  Age: 45 Year
  Sex: Female

DRUGS (4)
  1. HUMIRA [Concomitant]
     Active Substance: ADALIMUMAB
     Dosage: UNK
  2. REMICADE [Concomitant]
     Active Substance: INFLIXIMAB
     Dosage: UNK
  3. ORENCIA [Concomitant]
     Active Substance: ABATACEPT
     Dosage: UNK
  4. ENBREL [Suspect]
     Active Substance: ETANERCEPT
     Indication: PRODUCT USED FOR UNKNOWN INDICATION
     Dosage: UNK
     Route: 065

REACTIONS (7)
  - Uveitis [Unknown]
  - Drug intolerance [Unknown]
  - Depression [Unknown]
  - Fibromyalgia [Unknown]
  - Arthritis [Unknown]
  - Carpal tunnel syndrome [Unknown]
  - Dry eye [Unknown]
